FAERS Safety Report 8237125-9 (Version None)
Quarter: 2012Q1

REPORT INFORMATION
  Report Type: 
  Country: None (occurrence: None)
  Receive Date: 20120327
  Receipt Date: 20120314
  Transmission Date: 20120608
  Serious: Yes (Hospitalization)
  Sender: FDA-Public Use
  Company Number: JP-UCBSA-051141

PATIENT
  Age: 43 Year
  Sex: Female
  Weight: 48.5 kg

DRUGS (8)
  1. DEPAKENE [Concomitant]
     Dosage: DAILY DOSE:500MG
     Route: 048
     Dates: start: 20111031, end: 20111127
  2. GABAPENTIN [Concomitant]
     Dosage: DAILY DOSE:2400MG
     Route: 048
     Dates: start: 20080508
  3. KEPPRA [Suspect]
     Indication: EPILEPSY
     Route: 048
     Dates: start: 20111005, end: 20111227
  4. LEXIN [Concomitant]
     Dosage: DAILY DOSE:450MG
     Route: 048
     Dates: start: 20110331, end: 20120124
  5. LEXIN [Concomitant]
     Dosage: DAILY DOSE: 300 MG
     Route: 048
     Dates: start: 20120125, end: 20120222
  6. LEXIN [Concomitant]
     Dosage: DAILY DOSE:150MG
     Route: 048
     Dates: start: 20120223
  7. DEPAKENE [Concomitant]
     Dosage: DAILY DOSE:600MG
     Route: 048
     Dates: start: 20100506, end: 20111030
  8. DEPAKENE [Concomitant]
     Dosage: DAILY DOSE:300MG
     Route: 048
     Dates: start: 20111128

REACTIONS (1)
  - ILEUS [None]
